FAERS Safety Report 5068249-5 (Version None)
Quarter: 2006Q3

REPORT INFORMATION
  Report Type: 
  Country: None (occurrence: None)
  Receive Date: 20060802
  Receipt Date: 20050622
  Transmission Date: 20061208
  Serious: Yes (Hospitalization)
  Sender: FDA-Public Use
  Company Number: US-BRISTOL-MYERS SQUIBB COMPANY-13012687

PATIENT
  Age: 79 Year
  Sex: Female

DRUGS (9)
  1. COUMADIN [Suspect]
     Dates: start: 20050501
  2. TOPROL-XL [Concomitant]
  3. LEXAPRO [Concomitant]
     Dosage: 1.5 TABLETS DAILY (10 MG)
  4. SERAX [Concomitant]
  5. SYNTHROID [Concomitant]
  6. FOSAMAX [Concomitant]
  7. LIPITOR [Concomitant]
  8. BENICAR [Concomitant]
     Dosage: .5 TABLETS DAILY (20 MG)
  9. DIGOXIN [Concomitant]

REACTIONS (1)
  - HAEMORRHAGE [None]
